FAERS Safety Report 9275734 (Version 2)
Quarter: 2013Q2

REPORT INFORMATION
  Report Type: Spontaneous
  Country: VE (occurrence: VE)
  Receive Date: 20130507
  Receipt Date: 20130517
  Transmission Date: 20140414
  Serious: Yes (Death, Life-Threatening, Other)
  Sender: FDA-Public Use
  Company Number: VE-ABBOTT-13P-178-1085179-00

PATIENT
  Age: 22 Year
  Sex: Female

DRUGS (1)
  1. SEVORANE [Suspect]
     Indication: ANAESTHESIA
     Dates: start: 20130430, end: 20130430

REACTIONS (5)
  - Thrombosis [Fatal]
  - Loss of consciousness [Fatal]
  - Ischaemic stroke [Fatal]
  - Brain death [Fatal]
  - Cerebral ischaemia [Fatal]
